FAERS Safety Report 4776874-1 (Version None)
Quarter: 2005Q3

REPORT INFORMATION
  Report Type: 
  Country: None (occurrence: None)
  Receive Date: 20050922
  Receipt Date: 20050922
  Transmission Date: 20060218
  Serious: No
  Sender: FDA-Public Use
  Company Number: None

PATIENT
  Age: 74 Year
  Sex: Male
  Weight: 76.2043 kg

DRUGS (4)
  1. GEMCITABINE 1 GM VIAL [Suspect]
     Indication: BLADDER CANCER
     Dosage: 2000 MG IV Q WEEK
     Route: 042
     Dates: start: 20050706
  2. GEMCITABINE 1 GM VIAL [Suspect]
     Indication: BLADDER CANCER
     Dosage: 2000 MG IV Q WEEK
     Route: 042
     Dates: start: 20050713
  3. GEMCITABINE 1 GM VIAL [Suspect]
     Indication: BLADDER CANCER
     Dosage: 2000 MG IV Q WEEK
     Route: 042
     Dates: start: 20050803
  4. GEMCITABINE 1 GM VIAL [Suspect]
     Indication: BLADDER CANCER
     Dosage: 2000 MG IV Q WEEK
     Route: 042
     Dates: start: 20050810

REACTIONS (1)
  - THROMBOCYTOPENIA [None]
